FAERS Safety Report 20988540 (Version 2)
Quarter: 2023Q1

REPORT INFORMATION
  Report Type: Spontaneous
  Country: MT (occurrence: MT)
  Receive Date: 20220621
  Receipt Date: 20230216
  Transmission Date: 20230418
  Serious: Yes (Other)
  Sender: FDA-Public Use
  Company Number: MT-JUBILANT CADISTA PHARMACEUTICALS-2022JUB00169

PATIENT

DRUGS (5)
  1. CARBAMAZEPINE [Suspect]
     Active Substance: CARBAMAZEPINE
     Route: 065
  2. SIMVASTATIN [Suspect]
     Active Substance: SIMVASTATIN
     Route: 065
  3. VENLAFAXINE [Concomitant]
     Active Substance: VENLAFAXINE HYDROCHLORIDE
     Route: 065
  4. RANITIDINE [Concomitant]
     Active Substance: RANITIDINE
     Route: 065
  5. CLONAZEPAM [Concomitant]
     Active Substance: CLONAZEPAM
     Route: 065

REACTIONS (4)
  - Electrocardiogram QT shortened [Unknown]
  - Electrocardiogram ST segment elevation [Unknown]
  - Sinus bradycardia [Unknown]
  - Intentional overdose [Unknown]
